FAERS Safety Report 17572232 (Version 1)
Quarter: 2020Q1

REPORT INFORMATION
  Report Type: Spontaneous
  Country: DE (occurrence: DE)
  Receive Date: 20200323
  Receipt Date: 20200323
  Transmission Date: 20200409
  Serious: Yes (Hospitalization)
  Sender: FDA-Public Use
  Company Number: DE-SA-2020SA072519

PATIENT
  Age: 40 Year
  Sex: Male

DRUGS (3)
  1. PREDNISOLONE. [Suspect]
     Active Substance: PREDNISOLONE
     Indication: DERMATITIS ATOPIC
     Dosage: INTERMITTENT STEROID DOSE OF 50 MG PER OS TAKEN APPROXIMATELY EVERY THIRD DAY
     Dates: start: 2017, end: 201907
  2. DUPIXENT [Suspect]
     Active Substance: DUPILUMAB
     Indication: DERMATITIS ATOPIC
     Dosage: 600 MG
     Route: 058
     Dates: start: 201907
  3. DUPIXENT [Suspect]
     Active Substance: DUPILUMAB
     Dosage: 300 MG
     Route: 058

REACTIONS (6)
  - Treatment noncompliance [Unknown]
  - Psoriasis [Recovering/Resolving]
  - Skin plaque [Recovering/Resolving]
  - Dermatitis psoriasiform [Recovering/Resolving]
  - Acanthosis [Recovering/Resolving]
  - Parakeratosis [Recovering/Resolving]

NARRATIVE: CASE EVENT DATE: 201907
